FAERS Safety Report 13215927 (Version 1)
Quarter: 2017Q1

REPORT INFORMATION
  Report Type: Spontaneous
  Country: US (occurrence: US)
  Receive Date: 20170210
  Receipt Date: 20170210
  Transmission Date: 20170428
  Serious: No
  Sender: FDA-Public Use
  Company Number: US-ROCHE-1811768

PATIENT
  Sex: Female

DRUGS (6)
  1. MOMETASONE [Concomitant]
     Active Substance: MOMETASONE
     Route: 065
  2. XOLAIR [Suspect]
     Active Substance: OMALIZUMAB
     Indication: IDIOPATHIC URTICARIA
     Dosage: USE AS DIRECTED BY PHYSICIAN
     Route: 065
     Dates: start: 20160314, end: 20160708
  3. DOXEPIN HCL [Concomitant]
     Active Substance: DOXEPIN HYDROCHLORIDE
     Route: 065
  4. MONTELUKAST [Concomitant]
     Active Substance: MONTELUKAST SODIUM
     Route: 065
  5. CEFDINIR. [Concomitant]
     Active Substance: CEFDINIR
     Route: 065
  6. EPIPEN [Concomitant]
     Active Substance: EPINEPHRINE
     Dosage: 1 PAK INJ
     Route: 065

REACTIONS (2)
  - Pain [Not Recovered/Not Resolved]
  - Pain in extremity [Not Recovered/Not Resolved]
